FAERS Safety Report 4295271-9 (Version None)
Quarter: 2004Q1

REPORT INFORMATION
  Report Type: 
  Country: None (occurrence: None)
  Receive Date: 20040216
  Receipt Date: 20030507
  Transmission Date: 20041129
  Serious: No
  Sender: FDA-Public Use
  Company Number: US-GLAXOSMITHKLINE-A0407795A

PATIENT

DRUGS (4)
  1. LAMICTAL [Suspect]
     Route: 048
  2. EFFEXOR [Suspect]
     Route: 065
  3. DEPAKOTE [Concomitant]
     Dosage: 1000MG UNKNOWN
  4. AMBIEN [Concomitant]

REACTIONS (3)
  - BRUXISM [None]
  - TRISMUS [None]
  - VERTIGO [None]
